FAERS Safety Report 6887010-X (Version None)
Quarter: 2010Q3

REPORT INFORMATION
  Report Type: 
  Country: None (occurrence: None)
  Receive Date: 20100730
  Receipt Date: 20100721
  Transmission Date: 20110219
  Serious: Yes (Hospitalization)
  Sender: FDA-Public Use
  Company Number: CA-JNJFOC-20100707278

PATIENT
  Sex: Male
  Weight: 89 kg

DRUGS (2)
  1. REMICADE [Suspect]
     Indication: COLITIS ULCERATIVE
     Dosage: 3 RD LOADING DOSE
     Route: 042
  2. REMICADE [Suspect]
     Dosage: 1ST AND 2ND LOADING DOSES ON UNSPECIFIED DATES
     Route: 042

REACTIONS (2)
  - ABDOMINAL PAIN [None]
  - DIARRHOEA [None]
